FAERS Safety Report 10581523 (Version 1)
Quarter: 2014Q4

REPORT INFORMATION
  Report Type: Spontaneous
  Country: IT (occurrence: None)
  Receive Date: 20141110
  Receipt Date: 20141110
  Transmission Date: 20150529
  Serious: Yes (Death)
  Sender: FDA-Public Use
  Company Number: 2014STPI000619

PATIENT
  Age: 71 Year
  Sex: Male

DRUGS (1)
  1. CARNITOR [Suspect]
     Active Substance: LEVOCARNITINE
     Indication: PRODUCT USED FOR UNKNOWN INDICATION
     Route: 042
     Dates: start: 201406

REACTIONS (1)
  - Death [None]

NARRATIVE: CASE EVENT DATE: 2014
